FAERS Safety Report 24443954 (Version 2)
Quarter: 2024Q4

REPORT INFORMATION
  Report Type: Report from Study
  Country: US (occurrence: US)
  Receive Date: 20241016
  Receipt Date: 20241017
  Transmission Date: 20250115
  Serious: No
  Sender: ROCHE
  Company Number: US-ROCHE-2436355

PATIENT
  Age: 87 Year
  Sex: Female
  Weight: 61.23 kg

DRUGS (3)
  1. RITUXAN [Suspect]
     Active Substance: RITUXIMAB
     Indication: Myasthenia gravis
     Dosage: INFUSE 1000 MG INTRAVENOUSLY AND REPEAT IN 2 WEEKS?DAILY DAY 1 AND DAY 15 , EVERY 4 MONTHS?DATE OF S
     Route: 042
  2. RITUXAN [Suspect]
     Active Substance: RITUXIMAB
     Indication: Myositis
  3. TRUXIMA [Suspect]
     Active Substance: RITUXIMAB-ABBS
     Indication: Myasthenia gravis
     Route: 042
     Dates: start: 20220126, end: 20220126

REACTIONS (2)
  - Off label use [Unknown]
  - No adverse event [Unknown]
